FAERS Safety Report 6703922-1 (Version None)
Quarter: 2010Q2

REPORT INFORMATION
  Report Type: 
  Country: None (occurrence: None)
  Receive Date: 20100428
  Receipt Date: 20100412
  Transmission Date: 20101027
  Serious: Yes (Hospitalization)
  Sender: FDA-Public Use
  Company Number: ALD1-JP-2010-0014

PATIENT
  Age: 39 Year
  Sex: Female

DRUGS (2)
  1. ALDOMET [Suspect]
     Indication: HYPERTENSION
     Dosage: 250 MG PER ORAL; 500 MG PER ORAL
     Route: 048
     Dates: start: 20080626, end: 20080709
  2. ALDOMET [Suspect]
     Indication: HYPERTENSION
     Dosage: 250 MG PER ORAL; 500 MG PER ORAL
     Route: 048
     Dates: start: 20080710, end: 20080818

REACTIONS (4)
  - ALANINE AMINOTRANSFERASE INCREASED [None]
  - ASPARTATE AMINOTRANSFERASE INCREASED [None]
  - JAUNDICE [None]
  - LIVER DISORDER [None]
